FAERS Safety Report 11825578 (Version 1)
Quarter: 2015Q4

REPORT INFORMATION
  Report Type: Spontaneous
  Country: US (occurrence: US)
  Receive Date: 20151211
  Receipt Date: 20151211
  Transmission Date: 20160305
  Serious: No
  Sender: FDA-Public Use
  Company Number: US-JNJFOC-20150903321

PATIENT
  Age: 82 Year
  Sex: Female

DRUGS (9)
  1. CALCITRIOL. [Concomitant]
     Active Substance: CALCITRIOL
  2. PREVACID [Concomitant]
     Active Substance: LANSOPRAZOLE
  3. SYNTHROID [Concomitant]
     Active Substance: LEVOTHYROXINE SODIUM
  4. IMBRUVICA [Suspect]
     Active Substance: IBRUTINIB
     Indication: CHRONIC LYMPHOCYTIC LEUKAEMIA
     Route: 048
     Dates: start: 20150427
  5. TENORMIN [Concomitant]
     Active Substance: ATENOLOL
  6. ZOCOR [Concomitant]
     Active Substance: SIMVASTATIN
  7. NORVASC [Concomitant]
     Active Substance: AMLODIPINE BESYLATE
  8. BIOTIN [Concomitant]
     Active Substance: BIOTIN
  9. SODIUM BICARBONATE. [Concomitant]
     Active Substance: SODIUM BICARBONATE

REACTIONS (4)
  - Rhinorrhoea [Not Recovered/Not Resolved]
  - Oropharyngeal pain [Not Recovered/Not Resolved]
  - Nasopharyngitis [Not Recovered/Not Resolved]
  - Cough [Not Recovered/Not Resolved]

NARRATIVE: CASE EVENT DATE: 20150727
